FAERS Safety Report 9341370 (Version 1)
Quarter: 2013Q2

REPORT INFORMATION
  Report Type: Spontaneous
  Country: US (occurrence: None)
  Receive Date: 20130610
  Receipt Date: 20130610
  Transmission Date: 20140414
  Serious: No
  Sender: FDA-Public Use
  Company Number: None

PATIENT
  Age: 57 Year
  Sex: Female

DRUGS (2)
  1. TECFIDERA [Suspect]
     Indication: MULTIPLE SCLEROSIS
     Route: 048
     Dates: start: 20130420
  2. TECFIDERA [Suspect]
     Route: 048
     Dates: start: 20130427

REACTIONS (3)
  - Vomiting [None]
  - Nausea [None]
  - Back pain [None]
